FAERS Safety Report 17005993 (Version 2)
Quarter: 2019Q4

REPORT INFORMATION
  Report Type: Spontaneous
  Country: PT (occurrence: PT)
  Receive Date: 20191107
  Receipt Date: 20191114
  Transmission Date: 20200122
  Serious: Yes (Hospitalization, Other)
  Sender: FDA-Public Use
  Company Number: PT-MYLANLABS-2019M1106220

PATIENT
  Age: 26 Year
  Sex: Female

DRUGS (7)
  1. IBUPROFEN. [Suspect]
     Active Substance: IBUPROFEN
     Indication: DIARRHOEA
  2. METOCLOPRAMIDE. [Suspect]
     Active Substance: METOCLOPRAMIDE
     Indication: DIARRHOEA
     Dosage: UNK
     Route: 065
  3. METOCLOPRAMIDE. [Suspect]
     Active Substance: METOCLOPRAMIDE
     Indication: ABDOMINAL PAIN
  4. IBUPROFEN. [Suspect]
     Active Substance: IBUPROFEN
     Indication: VOMITING
  5. METOCLOPRAMIDE. [Suspect]
     Active Substance: METOCLOPRAMIDE
     Indication: VOMITING
  6. IBUPROFEN. [Suspect]
     Active Substance: IBUPROFEN
     Indication: GASTROINTESTINAL DISORDER
     Dosage: UNK
     Route: 065
  7. IBUPROFEN. [Suspect]
     Active Substance: IBUPROFEN
     Indication: ABDOMINAL PAIN

REACTIONS (3)
  - Product use in unapproved indication [Unknown]
  - Bickerstaff^s encephalitis [Not Recovered/Not Resolved]
  - Gastroenteritis [Unknown]
